FAERS Safety Report 5862035-1 (Version None)
Quarter: 2008Q3

REPORT INFORMATION
  Report Type: 
  Country: None (occurrence: None)
  Receive Date: 20080826
  Receipt Date: 20080815
  Transmission Date: 20090109
  Serious: Yes (Hospitalization, Other)
  Sender: FDA-Public Use
  Company Number: 2008SP016698

PATIENT
  Age: 62 Year
  Sex: Female

DRUGS (2)
  1. RIBAVIRIN [Suspect]
     Indication: HEPATITIS C VIRUS TEST
     Dosage: 1000 MG; QD
  2. PEG-INTRON [Suspect]
     Indication: HEPATITIS C VIRUS TEST
     Dosage: 1800 MCG; QW

REACTIONS (12)
  - ALOPECIA [None]
  - APHTHOUS STOMATITIS [None]
  - BETA 2 MICROGLOBULIN INCREASED [None]
  - DRY EYE [None]
  - GRANULOMA [None]
  - LEUKOPENIA [None]
  - LYMPHOPROLIFERATIVE DISORDER [None]
  - METASTASIS [None]
  - NORMOCHROMIC NORMOCYTIC ANAEMIA [None]
  - PLATELET COUNT DECREASED [None]
  - SARCOIDOSIS [None]
  - TUBERCULOSIS [None]
